FAERS Safety Report 9280791 (Version 3)
Quarter: 2013Q2

REPORT INFORMATION
  Report Type: Spontaneous
  Country: US (occurrence: US)
  Receive Date: 20130509
  Receipt Date: 20130530
  Transmission Date: 20140414
  Serious: Yes (Hospitalization, Other)
  Sender: FDA-Public Use
  Company Number: US-PFIZER INC-2013143519

PATIENT
  Sex: Female

DRUGS (4)
  1. GABAPENTIN [Suspect]
     Dosage: UNK
  2. LYRICA [Suspect]
     Dosage: UNK
     Dates: start: 2013, end: 2013
  3. CYMBALTA [Suspect]
     Dosage: UNK
  4. LEXAPRO [Suspect]
     Dosage: UNK

REACTIONS (25)
  - Complex regional pain syndrome [Recovered/Resolved]
  - Pain [Unknown]
  - Dyskinesia [Unknown]
  - Concussion [Unknown]
  - Injury [Unknown]
  - Pain [Unknown]
  - Upper limb fracture [Unknown]
  - Aphagia [Unknown]
  - Cognitive disorder [Unknown]
  - Brain injury [Unknown]
  - Apparent death [Unknown]
  - Contusion [Unknown]
  - Bedridden [Unknown]
  - Weight decreased [Unknown]
  - Dyspnoea [Unknown]
  - Memory impairment [Unknown]
  - Malaise [Unknown]
  - Swelling [Unknown]
  - Irritability [Unknown]
  - Vomiting [Unknown]
  - Diarrhoea [Unknown]
  - Periorbital contusion [Unknown]
  - Feeling abnormal [Unknown]
  - Activities of daily living impaired [Unknown]
  - Withdrawal syndrome [Unknown]
